FAERS Safety Report 16446861 (Version 4)
Quarter: 2019Q3

REPORT INFORMATION
  Report Type: Report from Study
  Country: FI (occurrence: FI)
  Receive Date: 20190618
  Receipt Date: 20190830
  Transmission Date: 20191004
  Serious: Yes (Hospitalization)
  Sender: FDA-Public Use
  Company Number: FI-EISAI MEDICAL RESEARCH-EC-2019-057877

PATIENT
  Age: 65 Year
  Sex: Female
  Weight: 68.5 kg

DRUGS (23)
  1. LENVATINIB [Suspect]
     Active Substance: LENVATINIB
     Route: 048
     Dates: start: 20190625, end: 20190703
  2. COZAAR COMP FORTE [Concomitant]
     Active Substance: HYDROCHLOROTHIAZIDE\LOSARTAN POTASSIUM
  3. SOMAC [Concomitant]
     Active Substance: PANTOPRAZOLE SODIUM
  4. GEFILUS BASIC [Concomitant]
  5. LENVATINIB [Suspect]
     Active Substance: LENVATINIB
     Route: 048
     Dates: start: 20190123, end: 20190124
  6. BISOPROLOL [Concomitant]
     Active Substance: BISOPROLOL
  7. MINISUN [Concomitant]
     Active Substance: CHOLECALCIFEROL
  8. OVESTIN [Concomitant]
     Active Substance: ESTRIOL
  9. PRIMPERAN [Concomitant]
     Active Substance: METOCLOPRAMIDE HYDROCHLORIDE
  10. LENVATINIB [Suspect]
     Active Substance: LENVATINIB
     Route: 048
     Dates: start: 20190128, end: 20190128
  11. EVEROLIMUS. [Suspect]
     Active Substance: EVEROLIMUS
     Indication: RENAL CELL CARCINOMA
     Route: 048
     Dates: start: 20181122, end: 20190116
  12. EVEROLIMUS. [Suspect]
     Active Substance: EVEROLIMUS
     Route: 048
     Dates: start: 20190625, end: 20190703
  13. ELOCON [Concomitant]
     Active Substance: MOMETASONE FUROATE
  14. IMODIUM [Concomitant]
     Active Substance: LOPERAMIDE HYDROCHLORIDE
  15. VOLTAREN FORTE [Concomitant]
     Active Substance: DICLOFENAC SODIUM
  16. LENVATINIB [Suspect]
     Active Substance: LENVATINIB
     Indication: RENAL CELL CARCINOMA
     Route: 048
     Dates: start: 20181122, end: 20190116
  17. EVEROLIMUS. [Suspect]
     Active Substance: EVEROLIMUS
     Route: 048
     Dates: start: 20190129, end: 20190614
  18. ZANIDIP [Concomitant]
     Active Substance: LERCANIDIPINE HYDROCHLORIDE
  19. LENVATINIB [Suspect]
     Active Substance: LENVATINIB
     Route: 048
     Dates: start: 20190129, end: 20190614
  20. FRAGMIN [Concomitant]
     Active Substance: DALTEPARIN SODIUM
  21. PARACETAMOL [Concomitant]
     Active Substance: ACETAMINOPHEN
  22. SIMVASTATIN. [Concomitant]
     Active Substance: SIMVASTATIN
  23. EMGESAN [Concomitant]
     Active Substance: MAGNESIUM HYDROXIDE

REACTIONS (2)
  - Infection [Recovered/Resolved]
  - Pyrexia [Recovered/Resolved]

NARRATIVE: CASE EVENT DATE: 20190613
